FAERS Safety Report 5979138-3 (Version None)
Quarter: 2008Q4

REPORT INFORMATION
  Report Type: 
  Country: None (occurrence: None)
  Receive Date: 20081204
  Receipt Date: 20080225
  Transmission Date: 20090506
  Serious: No
  Sender: FDA-Public Use
  Company Number: US-ABBOTT-08P-163-0439700-00

PATIENT
  Sex: Female
  Weight: 77.18 kg

DRUGS (2)
  1. TRICOR [Suspect]
     Indication: HYPERLIPIDAEMIA
     Route: 048
  2. UNKNOWN HYPERTENSION MEDICATION [Concomitant]
     Indication: HYPERTENSION
     Route: 048

REACTIONS (1)
  - CHOLELITHIASIS [None]
